FAERS Safety Report 15631320 (Version 1)
Quarter: 2018Q4

REPORT INFORMATION
  Report Type: Spontaneous
  Country: ES (occurrence: ES)
  Receive Date: 20181119
  Receipt Date: 20181119
  Transmission Date: 20190205
  Serious: Yes (Other)
  Sender: FDA-Public Use
  Company Number: ES-AUROBINDO-AUR-APL-2018-055507

PATIENT
  Sex: Female

DRUGS (3)
  1. RIBAVIRIN. [Suspect]
     Active Substance: RIBAVIRIN
     Indication: HEPATITIS C
     Dosage: DOSAGE FORM: UNSPECIFIED ()
     Route: 065
  2. DACLATASVIR. [Suspect]
     Active Substance: DACLATASVIR
     Indication: HEPATITIS C
     Dosage: DOSAGE FORM: UNSPECIFIED ()
     Route: 065
  3. SIMEPREVIR [Suspect]
     Active Substance: SIMEPREVIR
     Indication: HEPATITIS C
     Dosage: UNK
     Route: 065

REACTIONS (3)
  - Product use issue [Unknown]
  - Off label use [Unknown]
  - Hepatitis C [Unknown]
